FAERS Safety Report 5767635-5 (Version None)
Quarter: 2008Q2

REPORT INFORMATION
  Report Type: 
  Country: None (occurrence: None)
  Receive Date: 20080612
  Receipt Date: 20080602
  Transmission Date: 20081010
  Serious: Yes (Hospitalization, Other)
  Sender: FDA-Public Use
  Company Number: US-PFIZER INC-2008014071

PATIENT
  Sex: Female
  Weight: 97.1 kg

DRUGS (4)
  1. CELEBREX [Suspect]
     Indication: OSTEOARTHRITIS
     Route: 048
  2. BACTRIM [Suspect]
     Indication: URINARY TRACT INFECTION
     Route: 048
     Dates: start: 20071119, end: 20071210
  3. DIFLUCAN [Suspect]
     Indication: FUNGAL INFECTION
  4. LORTAB [Concomitant]

REACTIONS (3)
  - FUNGAL INFECTION [None]
  - STEVENS-JOHNSON SYNDROME [None]
  - VULVAL ABSCESS [None]
